FAERS Safety Report 9611780 (Version 2)
Quarter: 2013Q4

REPORT INFORMATION
  Report Type: Spontaneous
  Country: US (occurrence: US)
  Receive Date: 20131010
  Receipt Date: 20131015
  Transmission Date: 20140711
  Serious: Yes (Other)
  Sender: FDA-Public Use
  Company Number: US-JNJFOC-20131004014

PATIENT
  Age: 35 Year
  Sex: Male

DRUGS (3)
  1. SPECTAZOLE [Suspect]
     Indication: TINEA CRURIS
     Route: 061
     Dates: start: 19841010, end: 1984
  2. COUMADIN [Suspect]
     Indication: CARDIAC DISORDER
     Route: 065
  3. DIGOXIN [Concomitant]
     Indication: CARDIAC DISORDER
     Route: 065

REACTIONS (2)
  - Haemorrhage [Recovered/Resolved]
  - Prothrombin time prolonged [Recovered/Resolved]
